FAERS Safety Report 9255186 (Version 3)
Quarter: 2013Q3

REPORT INFORMATION
  Report Type: Spontaneous
  Country: US (occurrence: US)
  Receive Date: 20130425
  Receipt Date: 20130927
  Transmission Date: 20140515
  Serious: Yes (Hospitalization, Disabling)
  Sender: FDA-Public Use
  Company Number: US-ASTRAZENECA-2013SE27584

PATIENT
  Age: 41 Year
  Sex: Female
  Weight: 61.2 kg

DRUGS (18)
  1. NEXIUM [Suspect]
     Indication: HYPERCHLORHYDRIA
     Dosage: ONCE
     Route: 048
  2. NEXIUM [Suspect]
     Indication: HYPERCHLORHYDRIA
     Route: 048
     Dates: start: 20030701
  3. NEXIUM [Suspect]
     Indication: HYPERCHLORHYDRIA
     Route: 048
     Dates: start: 20041026
  4. OMEPRAZOLE [Suspect]
     Route: 048
  5. PREVACID [Suspect]
     Indication: GASTROOESOPHAGEAL REFLUX DISEASE
     Dates: start: 1990, end: 2012
  6. LISINOPRIL [Concomitant]
     Indication: BLOOD PRESSURE
  7. VITAMIN B6 [Concomitant]
  8. VITAMIN D3 [Concomitant]
  9. PREDNISONE [Concomitant]
     Dates: start: 20050721
  10. PROPOXY-N/APAP [Concomitant]
     Dosage: 100-650 MG TAB
     Dates: start: 20050813
  11. HYDROCODONE/APAP [Concomitant]
     Dosage: 5/500 TA
     Dates: start: 20050902
  12. SKELAXIN [Concomitant]
     Dates: start: 20050902
  13. MOBIC [Concomitant]
     Dates: start: 20050908
  14. SYNTEST HS [Concomitant]
     Dates: start: 20030303
  15. CELEBREX [Concomitant]
     Dates: start: 20030821
  16. FE-TINIC [Concomitant]
     Dates: start: 20031009
  17. ZANTAC [Concomitant]
  18. ADVIL [Concomitant]

REACTIONS (7)
  - Back injury [Unknown]
  - Tendon disorder [Unknown]
  - Osteoporosis [Unknown]
  - Bone disorder [Unknown]
  - Multiple fractures [Unknown]
  - Ankle fracture [Unknown]
  - Fall [Unknown]
